FAERS Safety Report 13828306 (Version 3)
Quarter: 2017Q3

REPORT INFORMATION
  Report Type: Spontaneous
  Country: US (occurrence: US)
  Receive Date: 20170803
  Receipt Date: 20170810
  Transmission Date: 20171127
  Serious: No
  Sender: FDA-Public Use
  Company Number: US-PFIZER INC-2017329399

PATIENT
  Age: 75 Year
  Sex: Male

DRUGS (3)
  1. NICOTROL [Suspect]
     Active Substance: NICOTINE
     Dosage: 4 MG, UNK
  2. VIAGRA [Suspect]
     Active Substance: SILDENAFIL CITRATE
     Indication: SEXUAL DYSFUNCTION
     Dosage: 100 MG, AS NEEDED
     Route: 048
  3. NICOTROL [Suspect]
     Active Substance: NICOTINE
     Dosage: UNK (HE GETS 1 OR 2 OR 1.5 MG)

REACTIONS (2)
  - Drug ineffective [Unknown]
  - Limb injury [Unknown]
